FAERS Safety Report 8236992-2 (Version None)
Quarter: 2012Q1

REPORT INFORMATION
  Report Type: 
  Country: None (occurrence: None)
  Receive Date: 20120327
  Receipt Date: 20120320
  Transmission Date: 20120608
  Serious: No
  Sender: FDA-Public Use
  Company Number: PHHY2012DE025279

PATIENT
  Sex: Female

DRUGS (2)
  1. TASIGNA [Suspect]
     Indication: CHRONIC MYELOID LEUKAEMIA
     Dosage: 400 MG, BID
     Route: 048
     Dates: start: 20100101
  2. URSO FALK [Concomitant]

REACTIONS (3)
  - HYPOTONIA [None]
  - MUSCULOSKELETAL STIFFNESS [None]
  - HYPOTHYROIDISM [None]
